FAERS Safety Report 19607615 (Version 1)
Quarter: 2021Q3

REPORT INFORMATION
  Report Type: Other
  Country: CN (occurrence: CN)
  Receive Date: 20210726
  Receipt Date: 20210726
  Transmission Date: 20211014
  Serious: Yes (Other)
  Sender: FDA-Public Use
  Company Number: CN-ROCHE-2871782

PATIENT

DRUGS (1)
  1. CAPECITABINE. [Suspect]
     Active Substance: CAPECITABINE
     Indication: BREAST CANCER
     Dosage: TAKING CAPECITABINE 2500MG/M2 PER DAY, CONTINUED FOR 3 WEEKS
     Route: 048

REACTIONS (3)
  - Renal injury [Unknown]
  - Liver injury [Unknown]
  - Myelosuppression [Unknown]
